FAERS Safety Report 5571348-2 (Version None)
Quarter: 2007Q4

REPORT INFORMATION
  Report Type: 
  Country: None (occurrence: None)
  Receive Date: 20071221
  Receipt Date: 20070808
  Transmission Date: 20080405
  Serious: No
  Sender: FDA-Public Use
  Company Number: A0668932A

PATIENT
  Age: 79 Year
  Sex: Female

DRUGS (6)
  1. FLUTICASONE PROPIONATE [Suspect]
     Dosage: 2PUFF PER DAY
     Route: 045
     Dates: start: 20050101, end: 20050101
  2. ATACAND [Concomitant]
  3. LOTREL [Concomitant]
  4. SYNTHROID [Concomitant]
  5. THEO-DUR [Concomitant]
  6. FOSAMAX [Concomitant]

REACTIONS (1)
  - DRUG INEFFECTIVE [None]
